FAERS Safety Report 11649976 (Version 2)
Quarter: 2020Q3

REPORT INFORMATION
  Report Type: Spontaneous
  Country: BR (occurrence: BR)
  Receive Date: 20151021
  Receipt Date: 20200807
  Transmission Date: 20201102
  Serious: Yes (Hospitalization, Other)
  Sender: FDA-Public Use
  Company Number: BR-BIOMARINAP-BR-2015-107776

PATIENT
  Age: 11 Year
  Sex: Female
  Weight: 33 kg

DRUGS (2)
  1. MACRODANTIN [Concomitant]
     Active Substance: NITROFURANTOIN
     Indication: INFECTION PROPHYLAXIS
     Dosage: 100 MILLIGRAM, QD
  2. VIMIZIM [Suspect]
     Active Substance: ELOSULFASE ALFA
     Indication: MUCOPOLYSACCHARIDOSIS IV
     Dosage: 60 MG, QW
     Route: 042
     Dates: start: 20141112

REACTIONS (2)
  - Lung disorder [Recovering/Resolving]
  - Bronchospasm [Unknown]

NARRATIVE: CASE EVENT DATE: 20151013
